FAERS Safety Report 13857271 (Version 2)
Quarter: 2017Q3

REPORT INFORMATION
  Report Type: Report from Study
  Country: US (occurrence: US)
  Receive Date: 20170810
  Receipt Date: 20170921
  Transmission Date: 20171127
  Serious: No
  Sender: FDA-Public Use
  Company Number: PHEH2017US024056

PATIENT
  Sex: Female

DRUGS (6)
  1. PROLEAK [Concomitant]
     Indication: PRODUCT USED FOR UNKNOWN INDICATION
     Dosage: UNK
     Route: 065
  2. MULTIVITAMINS [Concomitant]
     Active Substance: VITAMINS
     Indication: PRODUCT USED FOR UNKNOWN INDICATION
     Dosage: UNK
     Route: 065
  3. COSENTYX [Suspect]
     Active Substance: SECUKINUMAB
     Dosage: 300 MG, QMO
     Route: 058
     Dates: end: 20170801
  4. COSENTYX [Suspect]
     Active Substance: SECUKINUMAB
     Indication: PSORIATIC ARTHROPATHY
     Dosage: 300 MG, QMO
     Route: 065
     Dates: start: 201703
  5. COSENTYX [Suspect]
     Active Substance: SECUKINUMAB
     Dosage: 300 MG, QMO
     Route: 065
     Dates: start: 20170701
  6. PROLIA [Concomitant]
     Active Substance: DENOSUMAB
     Dosage: EVERY 6 MONTHS
     Route: 065

REACTIONS (14)
  - Chills [Unknown]
  - Fear [Unknown]
  - Nasal congestion [Unknown]
  - Drug ineffective [Unknown]
  - Hypotension [Unknown]
  - Hypersensitivity [Unknown]
  - Immune system disorder [Unknown]
  - Hyperhidrosis [Unknown]
  - Viral upper respiratory tract infection [Unknown]
  - Cough [Unknown]
  - Drug effect delayed [Unknown]
  - Memory impairment [Unknown]
  - Feeling hot [Unknown]
  - Oropharyngeal pain [Unknown]
